FAERS Safety Report 15127564 (Version 2)
Quarter: 2018Q4

REPORT INFORMATION
  Report Type: Report from Study
  Country: BR (occurrence: BR)
  Receive Date: 20180710
  Receipt Date: 20181005
  Transmission Date: 20190204
  Serious: No
  Sender: FDA-Public Use
  Company Number: PHHY2018BR037930

PATIENT
  Sex: Male
  Weight: 90 kg

DRUGS (4)
  1. AZORGA [Suspect]
     Active Substance: BRINZOLAMIDE\TIMOLOL MALEATE
     Dosage: (1 DRP IN THE MORNING AND 1 DROP AT NIGHT)
     Route: 047
  2. AZORGA [Suspect]
     Active Substance: BRINZOLAMIDE\TIMOLOL MALEATE
     Indication: INTRAOCULAR PRESSURE INCREASED
     Dosage: 1 GTT, BID (USES A DROP IN THE MORNING AND ANOTHER DROP AT NIGHT IN EACH EYE (ABOUT 6 YEARS))
     Route: 047
  3. TRAVATAN [Suspect]
     Active Substance: TRAVOPROST
     Indication: INTRAOCULAR PRESSURE INCREASED
     Dosage: 1 GTT, QN AT NIGHT IN EACH EYE (ABOUT 5 OR 6 YEARS)
     Route: 047
  4. GLAUB [Concomitant]
     Active Substance: BRIMONIDINE TARTRATE
     Indication: INTRAOCULAR PRESSURE INCREASED
     Dosage: 1 GTT, TID (1 DROP IN EACH EYE IN THE MORNING, AT LUNCHTIME AND AT NIGHT WHEN HE GO TO BED)
     Route: 047

REACTIONS (1)
  - Visual impairment [Unknown]
